FAERS Safety Report 15436136 (Version 1)
Quarter: 2018Q3

REPORT INFORMATION
  Report Type: Report from Study
  Country: KR (occurrence: KR)
  Receive Date: 20180927
  Receipt Date: 20180927
  Transmission Date: 20181010
  Serious: Yes (Hospitalization)
  Sender: FDA-Public Use
  Company Number: KR-SA-2018SA222909

PATIENT
  Age: 66 Year
  Sex: Male

DRUGS (7)
  1. APIDRA [Suspect]
     Active Substance: INSULIN GLULISINE
     Dosage: 20 IU, QID
     Route: 058
     Dates: start: 201808, end: 20180815
  2. INSULIN GLARGINE [Suspect]
     Active Substance: INSULIN GLARGINE
     Dosage: 40 IU, QD
     Route: 058
     Dates: start: 20180816, end: 201808
  3. APIDRA [Suspect]
     Active Substance: INSULIN GLULISINE
     Dosage: 4 U, TID
     Route: 058
     Dates: start: 201808
  4. INSULIN GLARGINE [Suspect]
     Active Substance: INSULIN GLARGINE
     Dosage: 14 IU QD
     Route: 058
     Dates: start: 201808
  5. APIDRA [Suspect]
     Active Substance: INSULIN GLULISINE
     Indication: DIABETES MELLITUS
     Dosage: 6 IU, QID
     Route: 058
     Dates: start: 20180803, end: 201808
  6. APIDRA [Suspect]
     Active Substance: INSULIN GLULISINE
     Dosage: 15 IU, TID
     Route: 058
     Dates: start: 20180816, end: 201808
  7. INSULIN GLARGINE [Suspect]
     Active Substance: INSULIN GLARGINE
     Indication: DIABETES MELLITUS
     Dosage: 30 IU, QD
     Route: 058
     Dates: start: 2017, end: 20180815

REACTIONS (4)
  - Hyperglycaemia [Not Recovered/Not Resolved]
  - Inappropriate schedule of drug administration [Unknown]
  - Diabetes mellitus management [Unknown]
  - Hyperglycaemia [Recovered/Resolved]

NARRATIVE: CASE EVENT DATE: 201808
